FAERS Safety Report 6772491-2 (Version None)
Quarter: 2010Q2

REPORT INFORMATION
  Report Type: 
  Country: None (occurrence: None)
  Receive Date: 20100616
  Receipt Date: 20100316
  Transmission Date: 20101027
  Serious: No
  Sender: FDA-Public Use
  Company Number: US-ASTRAZENECA-2010SE11417

PATIENT
  Age: 79 Year
  Sex: Female

DRUGS (4)
  1. PULMICORT FLEXHALER [Suspect]
     Indication: COUGH
     Dosage: 360 MCG, BID
     Route: 055
     Dates: start: 20100301
  2. SYNTHROID [Concomitant]
  3. FOSAMAX [Concomitant]
  4. CHOLESTEROL MEDICATION [Concomitant]

REACTIONS (2)
  - COUGH [None]
  - DRUG DOSE OMISSION [None]
